FAERS Safety Report 5577203-6 (Version None)
Quarter: 2007Q4

REPORT INFORMATION
  Report Type: 
  Country: None (occurrence: None)
  Receive Date: 20071228
  Receipt Date: 20071221
  Transmission Date: 20080405
  Serious: Yes (Other)
  Sender: FDA-Public Use
  Company Number: PHNR2007AU02215

PATIENT

DRUGS (1)
  1. COMTAN [Suspect]
     Route: 048

REACTIONS (3)
  - ASPIRATION [None]
  - GASTROINTESTINAL TUBE INSERTION [None]
  - PNEUMONIA [None]
